FAERS Safety Report 7265831-1 (Version None)
Quarter: 2011Q1

REPORT INFORMATION
  Report Type: 
  Country: None (occurrence: None)
  Receive Date: 20110131
  Receipt Date: 20110121
  Transmission Date: 20110831
  Serious: Yes (Death)
  Sender: FDA-Public Use
  Company Number: A0901726A

PATIENT
  Age: 83 Year
  Sex: Male

DRUGS (3)
  1. PROMACTA [Suspect]
     Route: 048
     Dates: start: 20090722, end: 20101219
  2. IMMUNE GLOBULIN INTRAVENOUS (HUMAN) [Concomitant]
  3. CORTICOSTEROIDS [Concomitant]

REACTIONS (1)
  - CHRONIC LYMPHOCYTIC LEUKAEMIA [None]
